FAERS Safety Report 7330658-9 (Version None)
Quarter: 2011Q1

REPORT INFORMATION
  Report Type: 
  Country: None (occurrence: None)
  Receive Date: 20110225
  Receipt Date: 20110225
  Transmission Date: 20110831
  Serious: Yes (Hospitalization)
  Sender: FDA-Public Use
  Company Number: None

PATIENT
  Age: 85 Year

DRUGS (1)
  1. VENOFER [Suspect]
     Dates: start: 20101005, end: 20101007

REACTIONS (6)
  - TENDERNESS [None]
  - VEIN DISORDER [None]
  - INDURATION [None]
  - ERYTHEMA [None]
  - PAIN IN EXTREMITY [None]
  - OEDEMA [None]
